FAERS Safety Report 11451114 (Version 1)
Quarter: 2015Q3

REPORT INFORMATION
  Report Type: Spontaneous
  Country: US (occurrence: None)
  Receive Date: 20150902
  Receipt Date: 20150902
  Transmission Date: 20151125
  Serious: Yes (Other)
  Sender: FDA-Public Use
  Company Number: None

PATIENT
  Age: 51 Year
  Sex: Male

DRUGS (2)
  1. VIEKIRA WEEKLY PACK [Concomitant]
  2. RIBASPHERE [Suspect]
     Active Substance: RIBAVIRIN
     Indication: HEPATITIS C
     Dosage: 3 TABLETS AM AND 3 PM BID ORAL
     Route: 048
     Dates: start: 20150428

REACTIONS (6)
  - Insomnia [None]
  - Abdominal pain [None]
  - Proctalgia [None]
  - Constipation [None]
  - Fatigue [None]
  - Swelling [None]

NARRATIVE: CASE EVENT DATE: 20150715
